FAERS Safety Report 6576803-4 (Version None)
Quarter: 2010Q1

REPORT INFORMATION
  Report Type: 
  Country: None (occurrence: None)
  Receive Date: 20100210
  Receipt Date: 20100201
  Transmission Date: 20100710
  Serious: Yes (Hospitalization)
  Sender: FDA-Public Use
  Company Number: DE-ROCHE-683937

PATIENT
  Sex: Female
  Weight: 60 kg

DRUGS (1)
  1. ACTEMRA [Suspect]
     Route: 042

REACTIONS (3)
  - FLUSHING [None]
  - RESPIRATORY DISTRESS [None]
  - URTICARIA [None]
